FAERS Safety Report 5253051-1 (Version None)
Quarter: 2007Q1

REPORT INFORMATION
  Report Type: 
  Country: None (occurrence: None)
  Receive Date: 20061201
  Receipt Date: 20060802
  Transmission Date: 20070707
  Serious: No
  Sender: FDA-Public Use
  Company Number: 2006PV018720

PATIENT
  Age: 60 Year
  Sex: Female

DRUGS (5)
  1. BYETTA [Suspect]
     Indication: DIABETES MELLITUS NON-INSULIN-DEPENDENT
     Dosage: SEE IMAGE
     Route: 058
     Dates: start: 20060301, end: 20060401
  2. BYETTA [Suspect]
     Indication: DIABETES MELLITUS NON-INSULIN-DEPENDENT
     Dosage: SEE IMAGE
     Route: 058
     Dates: start: 20060401
  3. PULMICORT [Suspect]
     Indication: PNEUMONIA
     Dates: start: 20060501
  4. PREDNISONE [Suspect]
     Indication: PNEUMONIA
     Dates: start: 20060501
  5. GLUCOPHAGE [Concomitant]

REACTIONS (7)
  - BLOOD GLUCOSE INCREASED [None]
  - BRONCHOSPASM [None]
  - HYPOAESTHESIA [None]
  - INFLUENZA [None]
  - PARAESTHESIA [None]
  - PNEUMONIA [None]
  - RASH GENERALISED [None]
